FAERS Safety Report 6330003-1 (Version None)
Quarter: 2009Q3

REPORT INFORMATION
  Report Type: 
  Country: None (occurrence: None)
  Receive Date: 20090826
  Receipt Date: 20090817
  Transmission Date: 20100115
  Serious: Yes (Hospitalization)
  Sender: FDA-Public Use
  Company Number: US-ABBOTT-09P-163-0591720-00

PATIENT
  Sex: Female

DRUGS (5)
  1. SYNTHROID [Suspect]
     Indication: HYPOTHYROIDISM
     Dosage: ONCE DAILY, DOESN'T REMEMBER MORE
     Dates: start: 19690101
  2. LISINOPRIL [Concomitant]
     Indication: HYPERTENSION
  3. MULTI-VITAMINS [Concomitant]
     Indication: VITAMIN SUPPLEMENTATION
  4. CALCIUM [Concomitant]
     Indication: MINERAL SUPPLEMENTATION
  5. PRIMAL DEFENSE [Concomitant]
     Indication: PROBIOTIC THERAPY
     Dosage: DAILY
     Route: 048

REACTIONS (2)
  - CONSTIPATION [None]
  - CORONARY ARTERY OCCLUSION [None]
